FAERS Safety Report 21336392 (Version 2)
Quarter: 2022Q3

REPORT INFORMATION
  Report Type: Spontaneous
  Country: IE (occurrence: IE)
  Receive Date: 20220915
  Receipt Date: 20220930
  Transmission Date: 20221027
  Serious: Yes (Other)
  Sender: FDA-Public Use
  Company Number: None

PATIENT
  Age: 74 Year
  Sex: Female

DRUGS (2)
  1. ATORVASTATIN [Suspect]
     Active Substance: ATORVASTATIN
     Indication: Blood cholesterol increased
     Dosage: UNIT DOSE : 40 MG  , FREQUENCY TIME : 24 HOUR  , DURATION : 29 DAYS, (GENERIC)
     Route: 065
     Dates: start: 20220715, end: 20220812
  2. HYDROCHLOROTHIAZIDE\OLMESARTAN MEDOXOMIL [Concomitant]
     Active Substance: HYDROCHLOROTHIAZIDE\OLMESARTAN MEDOXOMIL
     Indication: Product used for unknown indication
     Dosage: ONE DAILY ,FOR ACTIVE INGREDIENT OLMESARTAN MEDOXOMIL THE STRENGTH IS 20 MILLIGRAM  ,FOR ACTIVE INGR
     Dates: start: 20160501, end: 20220801

REACTIONS (4)
  - Irritability [Recovering/Resolving]
  - Myalgia [Recovering/Resolving]
  - Pruritus [Recovering/Resolving]
  - Eye pain [Recovering/Resolving]

NARRATIVE: CASE EVENT DATE: 20220701
